FAERS Safety Report 6942631-0 (Version None)
Quarter: 2010Q3

REPORT INFORMATION
  Report Type: 
  Country: None (occurrence: None)
  Receive Date: 20100826
  Receipt Date: 20100817
  Transmission Date: 20110219
  Serious: Yes (Other)
  Sender: FDA-Public Use
  Company Number: US-JNJCH-2010019130

PATIENT

DRUGS (5)
  1. ASPIRIN [Suspect]
     Indication: THROMBOSIS PROPHYLAXIS
     Dosage: TEXT:162MG ONCE WEEKLY, 81 MG ON SUBSQUENT DA
     Route: 048
  2. BIAXIN [Suspect]
     Indication: MULTIPLE MYELOMA
     Route: 048
  3. DEXAMETHASONE [Suspect]
     Indication: MULTIPLE MYELOMA
     Dosage: TEXT:UNSP. ON DAYS 1,8, 15, 22 (28 DAY CYCLE)
     Route: 065
  4. REVLIMID [Suspect]
     Indication: MULTIPLE MYELOMA
     Route: 048
  5. THALIDOMIDE [Suspect]
     Indication: MULTIPLE MYELOMA
     Dosage: TEXT:50 MG DAILY ;FIRST WEEK;THEN 100MG DAILY
     Route: 048

REACTIONS (1)
  - MYOPATHY [None]
